FAERS Safety Report 8811152 (Version 1)
Quarter: 2012Q4

REPORT INFORMATION
  Report Type: Spontaneous
  Country: US (occurrence: None)
  Receive Date: 20120925
  Receipt Date: 20120925
  Transmission Date: 20130627
  Serious: Yes (Other)
  Sender: FDA-Public Use
  Company Number: None

PATIENT
  Age: 69 Year
  Sex: Female
  Weight: 44.45 kg

DRUGS (1)
  1. BONIVA [Suspect]
     Indication: OSTEOPOROSIS
     Route: 048
     Dates: start: 20120830

REACTIONS (7)
  - Fatigue [None]
  - Back pain [None]
  - Abdominal pain upper [None]
  - Decreased appetite [None]
  - Decreased activity [None]
  - Anxiety [None]
  - Emotional distress [None]
